FAERS Safety Report 9215267 (Version 3)
Quarter: 2013Q3

REPORT INFORMATION
  Report Type: Spontaneous
  Country: US (occurrence: US)
  Receive Date: 20130405
  Receipt Date: 20130710
  Transmission Date: 20140515
  Serious: Yes (Other)
  Sender: FDA-Public Use
  Company Number: US-PFIZER INC-2013104772

PATIENT
  Age: 58 Year
  Sex: Male
  Weight: 91.16 kg

DRUGS (7)
  1. VIAGRA [Suspect]
     Indication: PAIN IN EXTREMITY
     Dosage: 100 MG, 1X/DAY
     Route: 048
  2. METOPROLOL [Concomitant]
     Dosage: 50 MG, UNK
  3. CLONAZEPAM [Concomitant]
     Dosage: 5 MG, UNK
  4. DILTIAZEM [Concomitant]
     Dosage: 360 MG, UNK
  5. SIMVASTATIN [Concomitant]
     Dosage: 40 MG, UNK
  6. ESCITALOPRAM [Concomitant]
     Dosage: 10 MG, UNK
  7. PANTOPRAZOLE [Concomitant]
     Dosage: 40 MG, UNK

REACTIONS (3)
  - Atrial fibrillation [Unknown]
  - Insomnia [Unknown]
  - Off label use [Unknown]
